FAERS Safety Report 23197928 (Version 1)
Quarter: 2023Q4

REPORT INFORMATION
  Report Type: Spontaneous
  Country: US (occurrence: None)
  Receive Date: 20231117
  Receipt Date: 20231117
  Transmission Date: 20240110
  Serious: Yes (Life-Threatening, Hospitalization)
  Sender: FDA-Public Use
  Company Number: None

PATIENT
  Age: 88 Year
  Sex: Male

DRUGS (1)
  1. WARFARIN [Suspect]
     Active Substance: WARFARIN

REACTIONS (7)
  - Cholangitis [None]
  - Therapy interrupted [None]
  - Bile duct stone [None]
  - Bile duct stent insertion [None]
  - Haemoglobin decreased [None]
  - Gastric ulcer [None]
  - Pneumonia aspiration [None]

NARRATIVE: CASE EVENT DATE: 20230909
